FAERS Safety Report 5073433-0 (Version None)
Quarter: 2006Q3

REPORT INFORMATION
  Report Type: 
  Country: None (occurrence: None)
  Receive Date: 20060717
  Receipt Date: 20051031
  Transmission Date: 20061208
  Serious: No
  Sender: FDA-Public Use
  Company Number: 2005002130

PATIENT
  Age: 48 Year
  Sex: Female

DRUGS (1)
  1. TARCEVA [Suspect]
     Dosage: 150 MG (QD), ORAL
     Route: 048
     Dates: start: 20050701, end: 20051031

REACTIONS (3)
  - BREAST DISCHARGE [None]
  - HEPATIC ENZYME INCREASED [None]
  - RESPIRATORY TRACT INFECTION [None]
